FAERS Safety Report 10891315 (Version 3)
Quarter: 2015Q2

REPORT INFORMATION
  Report Type: Report from Study
  Country: JP (occurrence: JP)
  Receive Date: 20150306
  Receipt Date: 20150519
  Transmission Date: 20150821
  Serious: Yes (Death)
  Sender: FDA-Public Use
  Company Number: JP-PFIZER INC-2015077338

PATIENT
  Age: 73 Year
  Sex: Female
  Weight: 34.6 kg

DRUGS (2)
  1. XALKORI [Suspect]
     Active Substance: CRIZOTINIB
     Indication: NON-SMALL CELL LUNG CANCER
     Dosage: 250 MG, 2X/DAY
     Route: 048
     Dates: start: 20140903, end: 20150106
  2. MORPHINE [Suspect]
     Active Substance: MORPHINE

REACTIONS (1)
  - Gastrointestinal perforation [Fatal]

NARRATIVE: CASE EVENT DATE: 20150216
